FAERS Safety Report 5024449-1 (Version None)
Quarter: 2006Q2

REPORT INFORMATION
  Report Type: 
  Country: None (occurrence: None)
  Receive Date: 20060426
  Receipt Date: 20060107
  Transmission Date: 20061013
  Serious: Yes (Other)
  Sender: FDA-Public Use
  Company Number: 2005144727

PATIENT
  Sex: Male

DRUGS (1)
  1. LYRICA [Suspect]
     Indication: NEUROPATHY PERIPHERAL
     Dosage: 150 MG (50 MG, 3 IN 1 D),
     Dates: start: 20051017, end: 20051001

REACTIONS (7)
  - BENIGN PROSTATIC HYPERPLASIA [None]
  - DIABETES MELLITUS NON-INSULIN-DEPENDENT [None]
  - EXERCISE TOLERANCE DECREASED [None]
  - FATIGUE [None]
  - HYPERTENSION [None]
  - MUSCULAR WEAKNESS [None]
  - PAIN IN EXTREMITY [None]
